FAERS Safety Report 17270841 (Version 1)
Quarter: 2020Q1

REPORT INFORMATION
  Report Type: Spontaneous
  Country: US (occurrence: US)
  Receive Date: 20200115
  Receipt Date: 20200115
  Transmission Date: 20200409
  Serious: Yes (Other)
  Sender: FDA-Public Use
  Company Number: US-ADVANZ PHARMA-202001000193

PATIENT

DRUGS (1)
  1. HYDROXYCHLOROQUINE [Suspect]
     Active Substance: HYDROXYCHLOROQUINE
     Indication: SERONEGATIVE ARTHRITIS
     Dosage: UNK
     Route: 065

REACTIONS (11)
  - Cardiac failure congestive [Unknown]
  - Orthopnoea [Unknown]
  - Systolic dysfunction [Unknown]
  - Ventricular dysfunction [Unknown]
  - Heart rate increased [Unknown]
  - Respiratory rate increased [Unknown]
  - Restrictive cardiomyopathy [Unknown]
  - Oxygen saturation decreased [Unknown]
  - Rales [Unknown]
  - Dyspnoea exertional [Unknown]
  - Cardiotoxicity [Unknown]
